FAERS Safety Report 14520788 (Version 2)
Quarter: 2018Q1

REPORT INFORMATION
  Report Type: Spontaneous
  Country: BR (occurrence: BR)
  Receive Date: 20180212
  Receipt Date: 20180212
  Transmission Date: 20180509
  Serious: Yes (Other)
  Sender: FDA-Public Use
  Company Number: PHHY2018BR016819

PATIENT
  Age: 28 Year
  Sex: Female

DRUGS (2)
  1. CICLOSPORIN [Suspect]
     Active Substance: CYCLOSPORINE
     Indication: BLAU SYNDROME
     Route: 065
  2. PREDNISONE. [Suspect]
     Active Substance: PREDNISONE
     Indication: BLAU SYNDROME
     Route: 048

REACTIONS (3)
  - Product use in unapproved indication [Unknown]
  - Keratopathy [Not Recovered/Not Resolved]
  - Iris adhesions [Not Recovered/Not Resolved]
